FAERS Safety Report 9437664 (Version 1)
Quarter: 2013Q3

REPORT INFORMATION
  Report Type: Spontaneous
  Country: GB (occurrence: None)
  Receive Date: 20130731
  Receipt Date: 20130731
  Transmission Date: 20140515
  Serious: Yes (Disabling)
  Sender: FDA-Public Use
  Company Number: AUR-APL-2013-06230

PATIENT
  Age: 56 Year
  Sex: Female

DRUGS (6)
  1. NAPROXEN (NAPROXEN) [Suspect]
     Indication: ARTHRALGIA
     Route: 048
     Dates: start: 20130610, end: 20130612
  2. ANASTROZOLE (ANASTROZOLE) [Concomitant]
  3. BISACODYL (BISACODYL) [Concomitant]
  4. CO-CARELDOPA (SINEMET) [Concomitant]
  5. REQUIP XL (ROPINIROLE HYDROCHLORIDE) [Concomitant]
  6. TRAMADOL (TRAMADOL) [Concomitant]

REACTIONS (2)
  - Freezing phenomenon [None]
  - Movement disorder [None]
